FAERS Safety Report 6682960-1 (Version None)
Quarter: 2010Q2

REPORT INFORMATION
  Report Type: 
  Country: None (occurrence: None)
  Receive Date: 20100415
  Receipt Date: 20100405
  Transmission Date: 20101027
  Serious: Yes (Other)
  Sender: FDA-Public Use
  Company Number: JP-ROCHE-696673

PATIENT
  Sex: Female
  Weight: 63 kg

DRUGS (12)
  1. PEGASYS [Suspect]
     Dosage: DOSE:180 MCG
     Route: 058
     Dates: start: 20091014, end: 20091104
  2. COPEGUS [Suspect]
     Dosage: DIVIDED INTO TWO DOSES
     Route: 048
     Dates: start: 20091014, end: 20091020
  3. DIOVAN [Concomitant]
     Route: 048
  4. CALBLOCK [Concomitant]
     Dosage: DOSE IS UNCERTAIN
     Route: 048
  5. DOXAZOSIN MESYLATE [Concomitant]
     Route: 048
  6. LONGES [Concomitant]
     Route: 048
  7. ALDOMET [Concomitant]
     Route: 048
  8. ASPIRIN [Concomitant]
     Route: 048
  9. KREMEZIN [Concomitant]
     Dosage: FORM:PER ORAL AGENT
     Route: 048
  10. FAMOTIDINE [Concomitant]
     Dosage: FORM:PERORAL AFENT
     Route: 048
  11. GLYCYRON [Concomitant]
     Route: 048
  12. NOVORAPID [Concomitant]
     Route: 058

REACTIONS (1)
  - BRAIN STEM HAEMORRHAGE [None]
